FAERS Safety Report 6103141-6 (Version None)
Quarter: 2009Q1

REPORT INFORMATION
  Report Type: 
  Country: None (occurrence: None)
  Receive Date: 20090302
  Receipt Date: 20090224
  Transmission Date: 20090719
  Serious: Yes (Other)
  Sender: FDA-Public Use
  Company Number: 040213

PATIENT
  Age: 27 Year
  Sex: Female

DRUGS (2)
  1. CLARAVIS [Suspect]
     Dosage: 20 MG, QD, ORAL, 40 MG, QD
     Route: 048
     Dates: start: 20090113, end: 20090121
  2. CLARAVIS [Suspect]
     Dosage: 20 MG, QD, ORAL, 40 MG, QD
     Route: 048
     Dates: start: 20090113, end: 20090121

REACTIONS (4)
  - ABORTION INDUCED [None]
  - DRUG EXPOSURE DURING PREGNANCY [None]
  - TREATMENT NONCOMPLIANCE [None]
  - UNINTENDED PREGNANCY [None]
